FAERS Safety Report 13906444 (Version 1)
Quarter: 2017Q3

REPORT INFORMATION
  Report Type: Spontaneous
  Country: FR (occurrence: FR)
  Receive Date: 20170825
  Receipt Date: 20170825
  Transmission Date: 20171127
  Serious: Yes (Other)
  Sender: FDA-Public Use
  Company Number: FR-BAYER-2017-160456

PATIENT
  Age: 29 Year
  Sex: Female
  Weight: 47 kg

DRUGS (1)
  1. MIRENA [Suspect]
     Active Substance: LEVONORGESTREL
     Indication: CONTRACEPTION
     Dosage: 20 MCG/24HR, CONT
     Route: 015
     Dates: start: 20151117

REACTIONS (11)
  - Loss of libido [Unknown]
  - Abdominal pain [Unknown]
  - Migraine [Unknown]
  - Amenorrhoea [Unknown]
  - Insomnia [Unknown]
  - Hot flush [Unknown]
  - Fatigue [Unknown]
  - Vulvovaginal discomfort [Unknown]
  - Depression [Not Recovered/Not Resolved]
  - Mood swings [Unknown]
  - Arthralgia [Unknown]

NARRATIVE: CASE EVENT DATE: 20151221
